FAERS Safety Report 7877862-9 (Version None)
Quarter: 2011Q4

REPORT INFORMATION
  Report Type: 
  Country: None (occurrence: None)
  Receive Date: 20111031
  Receipt Date: 20111031
  Transmission Date: 20120403
  Serious: No
  Sender: FDA-Public Use
  Company Number: None

PATIENT
  Age: 23 Year
  Sex: Female
  Weight: 61.234 kg

DRUGS (2)
  1. VIMOVO [Suspect]
     Indication: PAIN IN EXTREMITY
     Dosage: 1 TABLET
     Dates: start: 20110915, end: 20110917
  2. VIMOVO [Suspect]
     Indication: NECK PAIN
     Dosage: 1 TABLET
     Dates: start: 20110915, end: 20110917

REACTIONS (4)
  - GAIT DISTURBANCE [None]
  - FEELING ABNORMAL [None]
  - DIPLOPIA [None]
  - DIZZINESS [None]
